FAERS Safety Report 11112061 (Version 1)
Quarter: 2015Q2

REPORT INFORMATION
  Report Type: Spontaneous
  Country: US (occurrence: US)
  Receive Date: 20150514
  Receipt Date: 20150514
  Transmission Date: 20150821
  Serious: Yes (Death)
  Sender: FDA-Public Use
  Company Number: US-PFIZER INC-2015162129

PATIENT
  Age: 88 Year
  Sex: Female

DRUGS (6)
  1. SIMVASTATIN. [Concomitant]
     Active Substance: SIMVASTATIN
  2. FOSINOPRIL SODIUM-HCTZ [Concomitant]
  3. METOPROLOL SUCCINATE ER [Concomitant]
     Active Substance: METOPROLOL SUCCINATE
  4. IBRANCE [Suspect]
     Active Substance: PALBOCICLIB
  5. ASPIRIN ADULT [Concomitant]
     Dosage: LOW DOSE
  6. METFORMIN HCL ER [Concomitant]

REACTIONS (1)
  - Death [Fatal]
